FAERS Safety Report 10479448 (Version 2)
Quarter: 2014Q3

REPORT INFORMATION
  Report Type: Spontaneous
  Country: US (occurrence: US)
  Receive Date: 20140926
  Receipt Date: 20140926
  Transmission Date: 20150326
  Serious: Yes (Other)
  Sender: FDA-Public Use
  Company Number: US-EXELIXIS-CABO-14003904

PATIENT
  Age: 71 Year
  Sex: Male

DRUGS (17)
  1. COMETRIQ [Suspect]
     Active Substance: CABOZANTINIB S-MALATE
     Dosage: 100 MG, QD
     Route: 048
     Dates: start: 20140130, end: 20140710
  2. COMETRIQ [Suspect]
     Active Substance: CABOZANTINIB S-MALATE
     Dosage: 80 MG, QD
     Route: 048
     Dates: start: 2014
  3. ALLOPURINOL. [Concomitant]
     Active Substance: ALLOPURINOL
  4. SYNTHROID [Concomitant]
     Active Substance: LEVOTHYROXINE SODIUM
  5. COMETRIQ [Suspect]
     Active Substance: CABOZANTINIB S-MALATE
     Indication: THYROID CANCER
     Dosage: 100 MG, QD
     Route: 048
     Dates: start: 20131220
  6. ASPIRIN. [Concomitant]
     Active Substance: ASPIRIN
  7. LIDOCAINE VISCOUS [Concomitant]
     Active Substance: LIDOCAINE HYDROCHLORIDE
  8. FISH OIL [Concomitant]
     Active Substance: FISH OIL
  9. ZOLPIDEM [Concomitant]
     Active Substance: ZOLPIDEM\ZOLPIDEM TARTRATE
  10. COMETRIQ [Suspect]
     Active Substance: CABOZANTINIB S-MALATE
     Dosage: 100 MG, QD
     Dates: start: 2014, end: 2014
  11. COMETRIQ [Suspect]
     Active Substance: CABOZANTINIB S-MALATE
     Dosage: 120 MG, QD
     Route: 048
     Dates: start: 20140108, end: 20140129
  12. DIOVAN [Concomitant]
     Active Substance: VALSARTAN
  13. HYDROCODONE [Concomitant]
     Active Substance: HYDROCODONE
  14. VENLAFAXINE [Concomitant]
     Active Substance: VENLAFAXINE HYDROCHLORIDE
  15. OXYCODONE [Concomitant]
     Active Substance: OXYCODONE
  16. COMETRIQ [Suspect]
     Active Substance: CABOZANTINIB S-MALATE
     Dosage: 80 MG, QD
     Route: 048
     Dates: start: 20140710, end: 2014
  17. AVODART [Concomitant]
     Active Substance: DUTASTERIDE

REACTIONS (22)
  - Hyperhidrosis [Unknown]
  - Aphagia [Unknown]
  - Muscle spasms [Unknown]
  - Hair colour changes [Unknown]
  - Burning sensation [Unknown]
  - Pharyngitis [Recovering/Resolving]
  - Lethargy [Unknown]
  - Dyspnoea [Unknown]
  - Hypothyroidism [Unknown]
  - Presyncope [Unknown]
  - Oral pain [Not Recovered/Not Resolved]
  - Ageusia [Unknown]
  - Constipation [Unknown]
  - Decreased appetite [Recovering/Resolving]
  - Pulmonary embolism [Unknown]
  - Dysgeusia [Recovering/Resolving]
  - Dysphonia [Unknown]
  - Dizziness [Unknown]
  - Vertigo [Recovering/Resolving]
  - Labyrinthitis [Recovering/Resolving]
  - Stomatitis [Unknown]
  - Fatigue [Unknown]

NARRATIVE: CASE EVENT DATE: 20131124
